FAERS Safety Report 16482585 (Version 2)
Quarter: 2019Q3

REPORT INFORMATION
  Report Type: Spontaneous
  Country: IN (occurrence: IN)
  Receive Date: 20190627
  Receipt Date: 20190704
  Transmission Date: 20191004
  Serious: Yes (Other)
  Sender: FDA-Public Use
  Company Number: IN-GLAXOSMITHKLINE-IN2019GSK112627

PATIENT
  Age: 42 Year
  Sex: Female

DRUGS (5)
  1. ACITRETIN. [Suspect]
     Active Substance: ACITRETIN
     Indication: PUSTULAR PSORIASIS
     Dosage: 25 MG, UNK, SINGLE DOSE
     Route: 048
  2. PREDNISOLONE. [Concomitant]
     Active Substance: PREDNISOLONE
     Indication: PUSTULAR PSORIASIS
     Dosage: 10 MG, QD
  3. CYCLOSPORINE A [Concomitant]
     Active Substance: CYCLOSPORINE
     Dosage: 150 MG, BID
     Route: 048
  4. ACITRETIN. [Suspect]
     Active Substance: ACITRETIN
     Indication: CONDITION AGGRAVATED
  5. CYCLOSPORINE A [Concomitant]
     Active Substance: CYCLOSPORINE
     Indication: PUSTULAR PSORIASIS
     Dosage: 100 MG, BID

REACTIONS (16)
  - Dyspnoea [Recovered/Resolved]
  - Cough [Recovered/Resolved]
  - Pyrexia [Recovered/Resolved]
  - Swelling face [Recovering/Resolving]
  - Skin exfoliation [Recovering/Resolving]
  - Respiratory alkalosis [Recovered/Resolved]
  - Hypotension [Recovered/Resolved]
  - Leukocytosis [Recovered/Resolved]
  - Oedema [Recovered/Resolved]
  - Metabolic acidosis [Recovered/Resolved]
  - Respiratory distress [Recovered/Resolved]
  - Tachycardia [Recovered/Resolved]
  - Periorbital oedema [Recovered/Resolved]
  - Erythema [Recovered/Resolved]
  - Differentiation syndrome [Recovering/Resolving]
  - Generalised erythema [Recovered/Resolved]
